FAERS Safety Report 7246742-4 (Version None)
Quarter: 2011Q1

REPORT INFORMATION
  Report Type: 
  Country: None (occurrence: None)
  Receive Date: 20110127
  Receipt Date: 20110120
  Transmission Date: 20110831
  Serious: No
  Sender: FDA-Public Use
  Company Number: AU-JNJFOC-20110106740

PATIENT
  Age: 58 Year
  Sex: Male

DRUGS (7)
  1. ENDEP [Concomitant]
     Route: 065
  2. MOBIC [Concomitant]
     Route: 065
  3. DURAGESIC-100 [Suspect]
     Route: 062
  4. ZOLOFT [Concomitant]
     Route: 065
  5. DURAGESIC-100 [Suspect]
     Indication: NEURALGIA
     Route: 062
  6. EMADINE SE [Concomitant]
     Route: 065
  7. XANAX [Concomitant]
     Route: 065

REACTIONS (3)
  - PRODUCT QUALITY ISSUE [None]
  - DRUG EFFECT DECREASED [None]
  - WRONG TECHNIQUE IN DRUG USAGE PROCESS [None]
